FAERS Safety Report 20221987 (Version 1)
Quarter: 2021Q4

REPORT INFORMATION
  Report Type: Spontaneous
  Country: US (occurrence: US)
  Receive Date: 20211223
  Receipt Date: 20211223
  Transmission Date: 20220304
  Serious: Yes (Death, Hospitalization, Other)
  Sender: FDA-Public Use
  Company Number: US-LUPIN PHARMACEUTICALS INC.-2021-25305

PATIENT
  Age: 19 Year
  Sex: Female

DRUGS (15)
  1. BUPROPION HYDROCHLORIDE [Suspect]
     Active Substance: BUPROPION HYDROCHLORIDE
     Indication: Product used for unknown indication
     Dosage: UNK REFILLED WITH 200 TABLETS 13 DAYS PRIOR
     Route: 048
  2. CALCIUM [Suspect]
     Active Substance: CALCIUM
     Indication: Ventricular fibrillation
     Dosage: UNK
     Route: 065
  3. CALCIUM [Suspect]
     Active Substance: CALCIUM
     Indication: Cardiac arrest
  4. VASOPRESSIN [Suspect]
     Active Substance: VASOPRESSIN
     Indication: Cardiac arrest
     Dosage: 0.04 U/MIN
     Route: 065
  5. DOPAMINE [Suspect]
     Active Substance: DOPAMINE HYDROCHLORIDE
     Indication: Cardiac arrest
     Dosage: 10 MCG/MIN
     Route: 065
  6. EPINEPHRINE [Suspect]
     Active Substance: EPINEPHRINE
     Indication: Cardiac arrest
     Dosage: 0.5 MCG/KG/MIN
     Route: 065
  7. OXCARBAZEPINE [Suspect]
     Active Substance: OXCARBAZEPINE
     Indication: Product used for unknown indication
     Dosage: UNK BOTTLE WAS FOUND PARTIALLY EMPTY
     Route: 048
  8. SODIUM BICARBONATE [Concomitant]
     Active Substance: SODIUM BICARBONATE
     Indication: Metabolic acidosis
     Dosage: UNK
     Route: 065
  9. ACTIVATED CHARCOAL [Concomitant]
     Active Substance: ACTIVATED CHARCOAL
     Indication: Product used for unknown indication
     Dosage: UNK
     Route: 065
  10. MAGNESIUM [Concomitant]
     Active Substance: MAGNESIUM
     Indication: Metabolic acidosis
     Dosage: UNK
     Route: 065
  11. MIDAZOLAM [Concomitant]
     Active Substance: MIDAZOLAM
     Indication: Seizure
     Dosage: UNK
     Route: 042
  12. NOREPINEPHRINE [Concomitant]
     Active Substance: NOREPINEPHRINE
     Indication: Hypotension
     Dosage: 0.25 MCG/KG/MIN
     Route: 065
  13. PHENYLEPHRINE [Concomitant]
     Active Substance: PHENYLEPHRINE HYDROCHLORIDE
     Indication: Hypotension
     Dosage: 0.5 MCG/KG/MIN
     Route: 065
  14. INTRALIPID [Concomitant]
     Active Substance: EGG PHOSPHOLIPIDS\GLYCERIN\SOYBEAN OIL
     Indication: Product used for unknown indication
     Dosage: UNK
     Route: 042
  15. PROPOFOL [Concomitant]
     Active Substance: PROPOFOL
     Indication: Seizure
     Dosage: UNK
     Route: 065

REACTIONS (16)
  - Cardiopulmonary failure [Fatal]
  - Cardiac arrest [Fatal]
  - Ventricular fibrillation [Fatal]
  - Drug ineffective for unapproved indication [Fatal]
  - Seizure [Unknown]
  - Electrocardiogram QRS complex prolonged [Unknown]
  - Ventricular hypokinesia [Unknown]
  - Electrocardiogram QT prolonged [Unknown]
  - Metabolic acidosis [Unknown]
  - Hypertension [Unknown]
  - Mydriasis [Unknown]
  - Hyperhidrosis [Unknown]
  - Hypotension [Unknown]
  - Tachycardia [Unknown]
  - Intentional overdose [Unknown]
  - Off label use [Unknown]
